FAERS Safety Report 6537153-5 (Version None)
Quarter: 2010Q1

REPORT INFORMATION
  Report Type: 
  Country: None (occurrence: None)
  Receive Date: 20100114
  Receipt Date: 20091231
  Transmission Date: 20100710
  Serious: Yes (Other)
  Sender: FDA-Public Use
  Company Number: US-JNJFOC-20091105132

PATIENT
  Sex: Female
  Weight: 97.52 kg

DRUGS (19)
  1. REMICADE [Suspect]
     Indication: JUVENILE ARTHRITIS
     Route: 042
  2. REMICADE [Suspect]
     Indication: RHEUMATOID ARTHRITIS
     Dosage: EXPOSURE AT 4-6 WEEKS GESTATION
     Route: 042
  3. TYLENOL W/ CODEINE NO. 3 [Suspect]
     Indication: PAIN
     Dosage: EXPOSURE AT 30 WEEKS GESTATION
  4. WELLBUTRIN XL [Concomitant]
     Dosage: EXPOSURE AT 30 WEEKS GESTATION
  5. DIGOXIN [Concomitant]
     Indication: TACHYCARDIA FOETAL
     Dosage: TOOK FOR LAST WEEK OF PREGNANCY
  6. LEXAPRO [Concomitant]
     Dosage: EXPOSURE AT 30 WEEKS GESTATION, ALSO REPORTED AS 40 MG DAILY
  7. VITAMIN TAB [Concomitant]
  8. PROTONIX [Concomitant]
     Dosage: EXPOSURE AT 4-6 WEEKS GESTATION
  9. TRAZODONE HCL [Concomitant]
  10. ZOFRAN [Concomitant]
  11. AMBIEN [Concomitant]
  12. OXYGEN [Concomitant]
  13. IMITREX [Concomitant]
     Dosage: EXPOSURE AT 4-6 WEEKS GESTATION
  14. ZOCOR [Concomitant]
     Dosage: EXPOSURE AT 4-6 WEEKS GESTATION
  15. XANAX XR [Concomitant]
     Dosage: EXPOSURE AT 4-6 WEEKS GESTATION
  16. METHOTREXATE [Concomitant]
     Dosage: EXPOSURE AT 1 WEEK GESTATION
  17. OXYCONTIN [Concomitant]
  18. BETAMETHASONE [Concomitant]
     Indication: MATERNAL THERAPY TO ENHANCE FOETAL LUNG MATURITY
  19. NIRAVAM [Concomitant]

REACTIONS (3)
  - DRUG EXPOSURE DURING PREGNANCY [None]
  - INTRA-UTERINE DEATH [None]
  - PREMATURE LABOUR [None]
